FAERS Safety Report 21174173 (Version 1)
Quarter: 2022Q3

REPORT INFORMATION
  Report Type: Spontaneous
  Country: US (occurrence: US)
  Receive Date: 20220804
  Receipt Date: 20220804
  Transmission Date: 20221026
  Serious: Yes (Death, Other)
  Sender: FDA-Public Use
  Company Number: US-SA-SAC20220803001577

PATIENT
  Sex: Male

DRUGS (1)
  1. ZANTAC [Suspect]
     Active Substance: RANITIDINE HYDROCHLORIDE
     Dosage: UNK
     Route: 058
     Dates: start: 20040101, end: 20190101

REACTIONS (2)
  - Prostate cancer [Fatal]
  - Death [Fatal]

NARRATIVE: CASE EVENT DATE: 20140101
